FAERS Safety Report 9587968 (Version 1)
Quarter: 2013Q4

REPORT INFORMATION
  Report Type: Not Available
  Country: TW (occurrence: None)
  Receive Date: 20131003
  Receipt Date: 20131003
  Transmission Date: 20140711
  Serious: No
  Sender: FDA-Public Use
  Company Number: PHHY2013TW071376

PATIENT
  Age: 51 Year
  Sex: Male

DRUGS (25)
  1. AMN107 [Suspect]
     Dosage: 800 MG, UNK
     Dates: start: 20110425
  2. INDAPAMIDE [Concomitant]
     Indication: HYPERTENSION
     Dosage: UNK
     Dates: start: 20110215, end: 20110524
  3. AMLODIPINE BESYLATE [Concomitant]
     Indication: HYPERTENSION
     Dosage: UNK
     Dates: start: 20110215, end: 20110524
  4. CLONAZEPAM [Concomitant]
     Indication: MUSCLE SPASMS
     Dosage: UNK
     Dates: start: 20110215, end: 20110524
  5. CLONAZEPAM [Concomitant]
     Indication: INSOMNIA
     Dosage: UNK
     Dates: start: 20110802, end: 20120119
  6. CLONAZEPAM [Concomitant]
     Dosage: UNK
     Dates: start: 20120214, end: 20120820
  7. CLONAZEPAM [Concomitant]
     Dosage: UNK
     Dates: start: 20121016, end: 20121203
  8. FUSIDIC ACID [Concomitant]
     Indication: PRURITUS
     Dosage: UNK
     Dates: start: 20110524, end: 20110621
  9. LEVOCETIRIZIN [Concomitant]
     Indication: PRURITUS
     Dosage: UNK
     Dates: start: 20110621, end: 20110801
  10. DIOKTAEDRISCHER SMEKTIT [Concomitant]
     Indication: DIARRHOEA
     Dosage: UNK
     Dates: start: 20110621, end: 20110801
  11. DIOKTAEDRISCHER SMEKTIT [Concomitant]
     Indication: GASTROENTERITIS
     Dosage: UNK
     Dates: start: 20130215, end: 20130218
  12. DIMETHICONE [Concomitant]
     Indication: FLATULENCE
     Dosage: UNK
     Dates: start: 20110705, end: 20110801
  13. DIMETHICONE [Concomitant]
     Indication: ABDOMINAL DISTENSION
     Dosage: UNK
     Dates: start: 20111122, end: 20120119
  14. DIMETHICONE [Concomitant]
     Dosage: UNK
     Dates: start: 20120410, end: 20120720
  15. DIMETHICONE [Concomitant]
     Dosage: UNK
     Dates: start: 20120821, end: 20121112
  16. DIMETHICONE [Concomitant]
     Dosage: UNK
     Dates: start: 20130118
  17. CHOLESTYRAMINE RESIN [Concomitant]
     Indication: DIARRHOEA
     Dosage: UNK
     Dates: start: 20110705, end: 20110707
  18. CHOLESTYRAMINE RESIN [Concomitant]
     Dosage: UNK
     Dates: start: 20110802, end: 20110809
  19. CHOLESTYRAMINE RESIN [Concomitant]
     Dosage: UNK
     Dates: start: 20110830, end: 20110927
  20. CHOLESTYRAMINE RESIN [Concomitant]
     Dosage: UNK
  21. DEXTROMETHORPHAN [Concomitant]
     Indication: NASOPHARYNGITIS
     Dosage: UNK
     Dates: start: 20111122, end: 20111202
  22. DEXTROMETHORPHAN [Concomitant]
     Dosage: UNK
     Dates: start: 20120120, end: 20120130
  23. DEXTROMETHORPHAN HBR [Concomitant]
     Indication: NASOPHARYNGITIS
     Dosage: UNK
     Dates: start: 20121016, end: 20121025
  24. DEXTROMETHORPHAN HBR [Concomitant]
     Indication: UPPER RESPIRATORY TRACT INFECTION
     Dosage: UNK
     Dates: start: 20130319, end: 20130408
  25. DEXTROMETHORPHAN HBR [Concomitant]
     Dosage: UNK
     Dates: start: 20130412

REACTIONS (1)
  - Upper respiratory tract infection [Unknown]
